FAERS Safety Report 12666110 (Version 1)
Quarter: 2016Q3

REPORT INFORMATION
  Report Type: Spontaneous
  Country: US (occurrence: US)
  Receive Date: 20160818
  Receipt Date: 20160818
  Transmission Date: 20161109
  Serious: No
  Sender: FDA-Public Use
  Company Number: US-JAZZ-2016-US-005604

PATIENT
  Sex: Female

DRUGS (40)
  1. XYREM [Suspect]
     Active Substance: SODIUM OXYBATE
     Indication: SOMNOLENCE
     Dosage: 2.25 G, BID
     Route: 048
     Dates: start: 201411, end: 201411
  2. XYREM [Suspect]
     Active Substance: SODIUM OXYBATE
     Dosage: DOSE ADJUSTMENT
     Route: 048
  3. ALLERGY [Concomitant]
     Active Substance: UNSPECIFIED INGREDIENT
  4. BUDESONIDE. [Concomitant]
     Active Substance: BUDESONIDE
  5. ALPRAZOLAM. [Concomitant]
     Active Substance: ALPRAZOLAM
  6. MAGNESIUM CITRATE. [Concomitant]
     Active Substance: MAGNESIUM CITRATE
  7. MULTIVITAMINS [Concomitant]
     Active Substance: VITAMINS
  8. FOLIC ACID. [Concomitant]
     Active Substance: FOLIC ACID
  9. TRAMADOL. [Concomitant]
     Active Substance: TRAMADOL
  10. NYSTATIN. [Concomitant]
     Active Substance: NYSTATIN
  11. TRAZODONE HYDROCHLORIDE. [Concomitant]
     Active Substance: TRAZODONE HYDROCHLORIDE
  12. COLACE [Concomitant]
     Active Substance: DOCUSATE SODIUM
  13. CALCIUM CITRATE [Concomitant]
     Active Substance: CALCIUM CITRATE
  14. POTASSIUM [Concomitant]
     Active Substance: POTASSIUM
  15. BUPROPION. [Concomitant]
     Active Substance: BUPROPION
  16. DIOVAN [Concomitant]
     Active Substance: VALSARTAN
  17. FUROSEMIDE. [Concomitant]
     Active Substance: FUROSEMIDE
  18. VITAMIN B12 [Concomitant]
     Active Substance: CYANOCOBALAMIN
  19. VITAMIN D3 [Concomitant]
     Active Substance: CHOLECALCIFEROL
  20. XYREM [Suspect]
     Active Substance: SODIUM OXYBATE
     Dosage: 4.5 G, BID
     Route: 048
     Dates: start: 201603
  21. CIPRO [Concomitant]
     Active Substance: CIPROFLOXACIN HYDROCHLORIDE
  22. CYCLOBENZAPRINE [Concomitant]
     Active Substance: CYCLOBENZAPRINE
  23. CETIRIZINE [Concomitant]
     Active Substance: CETIRIZINE HYDROCHLORIDE
  24. CLOPIDOGREL [Concomitant]
     Active Substance: CLOPIDOGREL BISULFATE
  25. VITAMIN B2 [Concomitant]
     Active Substance: RIBOFLAVIN
  26. IRON [Concomitant]
     Active Substance: IRON
  27. MUCINEX [Concomitant]
     Active Substance: GUAIFENESIN
  28. GABAPENTIN. [Concomitant]
     Active Substance: GABAPENTIN
  29. MUPIROCIN. [Concomitant]
     Active Substance: MUPIROCIN
  30. BIOTIN [Concomitant]
     Active Substance: BIOTIN
  31. CYMBALTA [Concomitant]
     Active Substance: DULOXETINE HYDROCHLORIDE
  32. COENZYME Q10 [Concomitant]
     Active Substance: UBIDECARENONE
  33. NIFEDIPINE. [Concomitant]
     Active Substance: NIFEDIPINE
  34. PANTOPRAZOLE [Concomitant]
     Active Substance: PANTOPRAZOLE SODIUM
  35. RIZATRIPTAN. [Concomitant]
     Active Substance: RIZATRIPTAN
  36. TOPIRAMATE. [Concomitant]
     Active Substance: TOPIRAMATE
  37. FLAXSEED [Concomitant]
     Active Substance: FLAX SEED
  38. VITAMIN B1 [Concomitant]
     Active Substance: THIAMINE HYDROCHLORIDE
  39. LEVOTHYROXINE. [Concomitant]
     Active Substance: LEVOTHYROXINE
  40. MELATONIN [Concomitant]
     Active Substance: MELATONIN

REACTIONS (2)
  - Drug ineffective [None]
  - Prescribed overdose [Unknown]
